FAERS Safety Report 21446651 (Version 3)
Quarter: 2022Q4

REPORT INFORMATION
  Report Type: Spontaneous
  Country: US (occurrence: US)
  Receive Date: 20221012
  Receipt Date: 20221205
  Transmission Date: 20230112
  Serious: Yes (Hospitalization)
  Sender: FDA-Public Use
  Company Number: US-PFIZER INC-PV202200079949

PATIENT
  Age: 87 Year
  Sex: Female
  Weight: 95.238 kg

DRUGS (2)
  1. IBRANCE [Suspect]
     Active Substance: PALBOCICLIB
     Indication: Breast cancer stage IV
     Dosage: 100 MG
     Route: 048
     Dates: start: 202108
  2. LETROZOLE [Concomitant]
     Active Substance: LETROZOLE
     Dosage: 2.5 MG, 1X/DAY
     Dates: start: 202108

REACTIONS (3)
  - Fatigue [Not Recovered/Not Resolved]
  - Arthralgia [Unknown]
  - Limb discomfort [Unknown]
